FAERS Safety Report 6529124-X (Version None)
Quarter: 2009Q4

REPORT INFORMATION
  Report Type: 
  Country: None (occurrence: None)
  Receive Date: 20091224
  Receipt Date: 20091221
  Transmission Date: 20100525
  Serious: Yes (Other)
  Sender: FDA-Public Use
  Company Number: DE-1180003

PATIENT
  Sex: Female

DRUGS (1)
  1. FLUORESCITE [Suspect]
     Dosage: 4 ML; INTRAVENOUS BOLUS
     Route: 040

REACTIONS (2)
  - ANAPHYLACTIC SHOCK [None]
  - SYNCOPE [None]
